FAERS Safety Report 7122177-X (Version None)
Quarter: 2010Q4

REPORT INFORMATION
  Report Type: 
  Country: None (occurrence: None)
  Receive Date: 20101119
  Receipt Date: 20101119
  Transmission Date: 20110411
  Serious: Yes (Other)
  Sender: FDA-Public Use
  Company Number: None

PATIENT
  Age: 68 Year
  Sex: Female
  Weight: 59.8748 kg

DRUGS (1)
  1. OXYCONTIN [Suspect]
     Indication: PAIN
     Dosage: 1 TABLET TWICE A DAY PO
     Route: 048
     Dates: start: 20101009, end: 20101112

REACTIONS (9)
  - ABDOMINAL DISTENSION [None]
  - FLATULENCE [None]
  - GASTRITIS [None]
  - HEADACHE [None]
  - PRODUCT FORMULATION ISSUE [None]
  - PRODUCT SUBSTITUTION ISSUE [None]
  - PRURITUS [None]
  - RASH [None]
  - REACTION TO DRUG EXCIPIENTS [None]
